FAERS Safety Report 6619675-1 (Version None)
Quarter: 2010Q1

REPORT INFORMATION
  Report Type: 
  Country: None (occurrence: None)
  Receive Date: 20100309
  Receipt Date: 20100225
  Transmission Date: 20100710
  Serious: No
  Sender: FDA-Public Use
  Company Number: US-JNJFOC-20100300081

PATIENT
  Sex: Female
  Weight: 103.87 kg

DRUGS (2)
  1. FENTANYL-100 [Suspect]
     Indication: NECK PAIN
     Route: 062
  2. FENTANYL CITRATE [Suspect]
     Indication: NECK PAIN
     Route: 062

REACTIONS (4)
  - DRUG DOSE OMISSION [None]
  - PAIN [None]
  - PRODUCT ADHESION ISSUE [None]
  - WRONG TECHNIQUE IN DRUG USAGE PROCESS [None]
